FAERS Safety Report 4808796-1 (Version None)
Quarter: 2005Q4

REPORT INFORMATION
  Report Type: 
  Country: None (occurrence: None)
  Receive Date: 20051020
  Receipt Date: 20051020
  Transmission Date: 20060501
  Serious: Yes (Hospitalization, Other)
  Sender: FDA-Public Use
  Company Number: None

PATIENT
  Sex: Male
  Weight: 86.7 kg

DRUGS (5)
  1. TEMOZOLOMIDE [Suspect]
     Indication: GLIOBLASTOMA MULTIFORME
     Dosage: 75MG/M^2/DAY TOTAL DOSE 310 MG
     Dates: start: 20050928, end: 20051002
  2. TEMOZOLOMIDE [Suspect]
     Indication: GLIOBLASTOMA MULTIFORME
     Dosage: 75MG/M^2/DAY TOTAL DOSE 310 MG
     Dates: start: 20050720
  3. TEMOZOLOMIDE [Suspect]
     Dosage: 150MG/M^2/DAY DAYS 1-5
     Dates: start: 20050928, end: 20051002
  4. IRINOTECAN HCL [Suspect]
     Dosage: 200 MG/M2-^2 DAYS 1 AND 15 TOTAL DOSAGE 412 MG
     Dates: start: 20050928
  5. DEXAMETHASONE [Concomitant]

REACTIONS (4)
  - BRAIN OEDEMA [None]
  - HEADACHE [None]
  - MENTAL STATUS CHANGES [None]
  - VOMITING [None]
